FAERS Safety Report 8907179 (Version 1)
Quarter: 2012Q4

REPORT INFORMATION
  Report Type: 
  Country: CA (occurrence: CA)
  Receive Date: 20121114
  Receipt Date: 20121114
  Transmission Date: 20130627
  Serious: Yes (Hospitalization, Disabling)
  Sender: FDA-Public Use
  Company Number: PHBS2001CA05435

PATIENT
  Age: 74 Year
  Sex: Female
  Weight: 47.62 kg

DRUGS (2)
  1. EXELON [Suspect]
     Indication: DEMENTIA ALZHEIMER^S TYPE
     Dosage: 1.5 mg,
     Route: 048
     Dates: start: 20010222
  2. EXELON [Suspect]
     Dosage: 4.5 mg, BID
     Route: 048
     Dates: start: 20010406, end: 20010417

REACTIONS (14)
  - Aphagia [Not Recovered/Not Resolved]
  - Dehydration [Not Recovered/Not Resolved]
  - Malnutrition [Not Recovered/Not Resolved]
  - Aggression [Not Recovered/Not Resolved]
  - Affect lability [Not Recovered/Not Resolved]
  - Crying [Not Recovered/Not Resolved]
  - Agitation [Recovered/Resolved]
  - Restlessness [Recovering/Resolving]
  - Fear [Unknown]
  - Tremor [Not Recovered/Not Resolved]
  - Nausea [Not Recovered/Not Resolved]
  - Confusional state [Not Recovered/Not Resolved]
  - Vomiting [Recovered/Resolved]
  - Decreased appetite [Unknown]
